FAERS Safety Report 10482244 (Version 1)
Quarter: 2014Q3

REPORT INFORMATION
  Report Type: Spontaneous
  Country: US (occurrence: US)
  Receive Date: 20140929
  Receipt Date: 20140929
  Transmission Date: 20150326
  Serious: No
  Sender: FDA-Public Use
  Company Number: US-TEVA-503917USA

PATIENT
  Sex: Male

DRUGS (1)
  1. CLARAVIS [Suspect]
     Active Substance: ISOTRETINOIN
     Dates: start: 20140522, end: 20140624

REACTIONS (1)
  - Mononucleosis syndrome [Unknown]
